FAERS Safety Report 5647343-1 (Version None)
Quarter: 2008Q1

REPORT INFORMATION
  Report Type: 
  Country: None (occurrence: None)
  Receive Date: 20080303
  Receipt Date: 20080220
  Transmission Date: 20080703
  Serious: Yes (Hospitalization)
  Sender: FDA-Public Use
  Company Number: US-AVENTIS-200811753GDDC

PATIENT
  Age: 60 Year
  Sex: Female
  Weight: 80.3 kg

DRUGS (8)
  1. TAXOTERE [Suspect]
     Indication: OVARIAN CANCER
     Route: 042
     Dates: start: 20060818, end: 20060818
  2. OXALIPLATIN [Suspect]
     Indication: OVARIAN CANCER
     Route: 042
     Dates: start: 20060818, end: 20060818
  3. BEVACIZUMAB [Suspect]
     Indication: OVARIAN CANCER
     Route: 042
     Dates: start: 20060818, end: 20060818
  4. GLYBURIDE [Concomitant]
     Dosage: DOSE: UNK
  5. CAPTOPRIL [Concomitant]
     Dosage: DOSE: UNK
  6. LOVENOX [Concomitant]
     Dosage: DOSE: UNK
  7. REGLAN                             /00041901/ [Concomitant]
     Dosage: DOSE: UNK
  8. OXYCODONE HCL [Concomitant]
     Dosage: DOSE: 5/325 MG

REACTIONS (1)
  - HYPOGLYCAEMIA [None]
